FAERS Safety Report 5026515-3 (Version None)
Quarter: 2006Q2

REPORT INFORMATION
  Report Type: 
  Country: None (occurrence: None)
  Receive Date: 20060603
  Receipt Date: 20060603
  Transmission Date: 20061013
  Serious: Yes (Hospitalization, Disabling, Other)
  Sender: FDA-Public Use
  Company Number: None

PATIENT
  Sex: Female
  Weight: 52.6173 kg

DRUGS (2)
  1. METFORMIN [Suspect]
     Indication: POLYCYSTIC OVARIES
     Dosage: 500 MG 1 X DAILY ORAL
     Route: 048
     Dates: start: 20050617, end: 20050630
  2. AMBIEN CR [Suspect]
     Indication: INSOMNIA
     Dosage: 12.5 MG X NIGHTLY ORAL
     Route: 048
     Dates: start: 20060327, end: 20060423

REACTIONS (9)
  - ABORTED PREGNANCY [None]
  - DEPRESSION [None]
  - DIARRHOEA [None]
  - DRUG DEPENDENCE [None]
  - DRUG EXPOSURE DURING PREGNANCY [None]
  - INSOMNIA [None]
  - POLYCYSTIC OVARIES [None]
  - PREGNANCY [None]
  - SUICIDAL IDEATION [None]
